FAERS Safety Report 5276558-X (Version None)
Quarter: 2007Q1

REPORT INFORMATION
  Report Type: 
  Country: None (occurrence: None)
  Receive Date: 20070327
  Receipt Date: 20070316
  Transmission Date: 20070707
  Serious: Yes (Death, Hospitalization)
  Sender: FDA-Public Use
  Company Number: SEWYE098120MAR07

PATIENT
  Age: 45 Year
  Sex: Female

DRUGS (5)
  1. TAZOCIN [Suspect]
     Indication: MYCOSIS FUNGOIDES
     Dosage: 12 G DAILY
     Dates: start: 20000602, end: 20000609
  2. SANDIMMUNE [Concomitant]
  3. PRECORTALON AQUOSUM [Concomitant]
  4. CYMEVENE [Suspect]
     Indication: CYTOMEGALOVIRUS SEROLOGY
     Route: 042
     Dates: start: 20000601, end: 20000604
  5. AMBISOME [Suspect]
     Indication: MYCOSIS FUNGOIDES
     Dosage: NOT SPECIFIED
     Dates: start: 20000524, end: 20000605

REACTIONS (3)
  - CONDITION AGGRAVATED [None]
  - HEPATIC FAILURE [None]
  - RENAL FAILURE [None]
